FAERS Safety Report 8329935-4 (Version None)
Quarter: 2012Q2

REPORT INFORMATION
  Report Type: 
  Country: None (occurrence: None)
  Receive Date: 20120502
  Receipt Date: 20120425
  Transmission Date: 20120825
  Serious: Yes (Hospitalization)
  Sender: FDA-Public Use
  Company Number: US-JNJFOC-20120412291

PATIENT
  Age: 49 Year
  Sex: Female
  Weight: 86.18 kg

DRUGS (3)
  1. PERCOCET [Concomitant]
  2. XARELTO [Suspect]
     Indication: KNEE ARTHROPLASTY
     Route: 048
  3. OXYCONTIN [Concomitant]

REACTIONS (1)
  - DEEP VEIN THROMBOSIS [None]
